FAERS Safety Report 7206525-8 (Version None)
Quarter: 2011Q1

REPORT INFORMATION
  Report Type: 
  Country: None (occurrence: None)
  Receive Date: 20110103
  Receipt Date: 20101222
  Transmission Date: 20110831
  Serious: Yes (Hospitalization, Other)
  Sender: FDA-Public Use
  Company Number: US-JNJFOC-20100804660

PATIENT
  Sex: Male

DRUGS (1)
  1. LEVAQUIN [Suspect]
     Indication: INFECTION
     Route: 048

REACTIONS (6)
  - ROTATOR CUFF SYNDROME [None]
  - TENDON RUPTURE [None]
  - PERIARTHRITIS [None]
  - TENOSYNOVITIS [None]
  - JOINT INJURY [None]
  - MUSCULOSKELETAL PAIN [None]
